FAERS Safety Report 13622924 (Version 1)
Quarter: 2017Q2

REPORT INFORMATION
  Report Type: Spontaneous
  Country: US (occurrence: US)
  Receive Date: 20170607
  Receipt Date: 20170607
  Transmission Date: 20170830
  Serious: No
  Sender: FDA-Public Use
  Company Number: US-PURDUE-USA-2016-0132878

PATIENT
  Sex: Female

DRUGS (2)
  1. BUTRANS [Suspect]
     Active Substance: BUPRENORPHINE
     Dosage: UNK
     Route: 062
     Dates: start: 2016, end: 2016
  2. BUTRANS [Suspect]
     Active Substance: BUPRENORPHINE
     Indication: PRODUCT USED FOR UNKNOWN INDICATION
     Dosage: 20 MCG/HR, WEEKLY
     Route: 062
     Dates: start: 2016

REACTIONS (13)
  - Application site rash [Unknown]
  - Blister [Unknown]
  - Application site exfoliation [Unknown]
  - Irritability [Unknown]
  - Wrong technique in product usage process [Unknown]
  - Application site pruritus [Unknown]
  - Drug withdrawal syndrome [Unknown]
  - Application site scar [Unknown]
  - Product adhesion issue [Unknown]
  - Anxiety [Unknown]
  - Product physical issue [Unknown]
  - Petechiae [Unknown]
  - Application site pain [Unknown]
